FAERS Safety Report 5345135-4 (Version None)
Quarter: 2007Q2

REPORT INFORMATION
  Report Type: 
  Country: None (occurrence: None)
  Receive Date: 20070601
  Receipt Date: 20070517
  Transmission Date: 20071010
  Serious: Yes (Hospitalization, Other)
  Sender: FDA-Public Use
  Company Number: 2007MP000235

PATIENT
  Age: 60 Year
  Sex: Male
  Weight: 121.7 kg

DRUGS (6)
  1. DACOGEN [Suspect]
     Dosage: 48 MG;QD;IV
     Route: 042
     Dates: start: 20070507, end: 20070510
  2. LEVAQUIN [Concomitant]
  3. SYNTHROID [Concomitant]
  4. PROTONIX [Concomitant]
  5. DARVOCET [Concomitant]
  6. SENOKOT [Concomitant]

REACTIONS (6)
  - BLOOD BILIRUBIN INCREASED [None]
  - CARDIAC TAMPONADE [None]
  - PERICARDITIS [None]
  - RENAL FAILURE [None]
  - THROMBOSIS [None]
  - TRANSAMINASES INCREASED [None]
